FAERS Safety Report 4428578-2 (Version None)
Quarter: 2004Q3

REPORT INFORMATION
  Report Type: 
  Country: None (occurrence: None)
  Receive Date: 20040813
  Receipt Date: 20040803
  Transmission Date: 20050211
  Serious: Yes (Hospitalization)
  Sender: FDA-Public Use
  Company Number: 2004EU001493

PATIENT
  Age: 26 Year
  Sex: Male

DRUGS (3)
  1. PROGRAF [Suspect]
     Indication: LIVER TRANSPLANT
     Dosage: D
  2. PREDNISONE [Concomitant]
  3. MYCOPHENOLATE MOFETIL (MYCOPHENOLATE MOFETIL) [Concomitant]

REACTIONS (1)
  - HAEMOLYTIC ANAEMIA [None]
